FAERS Safety Report 8236452-9 (Version None)
Quarter: 2012Q1

REPORT INFORMATION
  Report Type: 
  Country: None (occurrence: None)
  Receive Date: 20120327
  Receipt Date: 20120320
  Transmission Date: 20120608
  Serious: No
  Sender: FDA-Public Use
  Company Number: US-PFIZER INC-2012021482

PATIENT
  Sex: Male

DRUGS (3)
  1. LIPITOR [Concomitant]
     Indication: HYPERLIPIDAEMIA
  2. BACTRIM DS [Suspect]
     Indication: URINARY TRACT INFECTION
     Dosage: 1 DF, 2X/DAY
     Route: 048
     Dates: start: 20111028, end: 20111101
  3. LIPITOR [Concomitant]
     Indication: CORONARY ARTERY DISEASE
     Dosage: 40 MG, 1X/DAY
     Route: 048
     Dates: start: 20111028

REACTIONS (1)
  - RASH GENERALISED [None]
